FAERS Safety Report 23734454 (Version 5)
Quarter: 2025Q2

REPORT INFORMATION
  Report Type: Report from Study
  Country: US (occurrence: US)
  Receive Date: 20240412
  Receipt Date: 20250626
  Transmission Date: 20250716
  Serious: Yes (Other)
  Sender: RECORDATI
  Company Number: US-ORPHANEU-2024002370

PATIENT
  Sex: Female
  Weight: 89.383 kg

DRUGS (14)
  1. ISTURISA [Suspect]
     Active Substance: OSILODROSTAT PHOSPHATE
     Indication: Pituitary-dependent Cushing^s syndrome
     Dates: start: 20240202, end: 202402
  2. ISTURISA [Suspect]
     Active Substance: OSILODROSTAT PHOSPHATE
     Dosage: 5 MG, (2 MG AM AND 3 MG PM) BID, TABLET
     Route: 048
     Dates: start: 20240220
  3. ZOFRAN [Suspect]
     Active Substance: ONDANSETRON HYDROCHLORIDE
     Indication: Product used for unknown indication
  4. ALPRAZOLAM [Concomitant]
     Active Substance: ALPRAZOLAM
     Indication: Product used for unknown indication
     Dosage: 0.5 MG, QD
     Route: 048
     Dates: start: 20190921
  5. EPIPEN [Concomitant]
     Active Substance: EPINEPHRINE
     Indication: Product used for unknown indication
     Dates: start: 20211018
  6. LABETALOL HYDROCHLORIDE [Concomitant]
     Active Substance: LABETALOL HYDROCHLORIDE
     Indication: Product used for unknown indication
     Dosage: 200 MG, BID TABLET
     Route: 048
     Dates: start: 20230131
  7. LEVOTHYROXINE SODIUM [Concomitant]
     Active Substance: LEVOTHYROXINE SODIUM
     Indication: Product used for unknown indication
     Dosage: 100 MICROGRAM, QD (TABLET)
     Route: 048
     Dates: start: 20220131
  8. LISINOPRIL [Concomitant]
     Active Substance: LISINOPRIL
     Indication: Product used for unknown indication
     Dosage: 10 MG, QD (TABLET)
     Route: 048
     Dates: start: 20230131
  9. LISINOPRIL [Concomitant]
     Active Substance: LISINOPRIL
     Dosage: 10 MG, BID (TABLET)
     Route: 048
     Dates: start: 2025
  10. MOUNJARO [Concomitant]
     Active Substance: TIRZEPATIDE
     Indication: Product used for unknown indication
     Dosage: 12.5, QW
     Route: 058
     Dates: start: 20230803
  11. OMEPRAZOLE [Concomitant]
     Active Substance: OMEPRAZOLE
     Indication: Product used for unknown indication
     Dosage: 40 MG, BID (CAPSULE)
     Route: 048
     Dates: start: 20200916
  12. ONDANSETRON HYDROCHLORIDE [Concomitant]
     Active Substance: ONDANSETRON HYDROCHLORIDE
     Indication: Product used for unknown indication
     Route: 048
     Dates: start: 20230609
  13. VITAMIN B12 [Concomitant]
     Active Substance: CYANOCOBALAMIN
     Indication: Product used for unknown indication
     Dosage: 500 MICROGRAM, QD TABLET
     Route: 048
     Dates: start: 20240220
  14. VITAMIN D [Concomitant]
     Active Substance: VITAMIN D NOS
     Indication: Product used for unknown indication
     Dosage: 1.25 MG, QW
     Route: 048
     Dates: start: 20200916

REACTIONS (12)
  - Recurrent cancer [Not Recovered/Not Resolved]
  - Optic nerve compression [Not Recovered/Not Resolved]
  - Neoplasm skin [Unknown]
  - Brain fog [Unknown]
  - Glycosylated haemoglobin decreased [Unknown]
  - Visual impairment [Not Recovered/Not Resolved]
  - Anxiety [Unknown]
  - Hypertension [Recovered/Resolved]
  - Malaise [Unknown]
  - Headache [Unknown]
  - Decreased appetite [Unknown]
  - Disease progression [Recovered/Resolved]

NARRATIVE: CASE EVENT DATE: 20240101
